FAERS Safety Report 6439445-7 (Version None)
Quarter: 2009Q4

REPORT INFORMATION
  Report Type: 
  Country: None (occurrence: None)
  Receive Date: 20091113
  Receipt Date: 20091105
  Transmission Date: 20100525
  Serious: Yes (Other)
  Sender: FDA-Public Use
  Company Number: US-KINGPHARMUSA00001-K200901393

PATIENT
  Age: 46 Year
  Sex: Female

DRUGS (4)
  1. FLECTOR [Suspect]
     Indication: JOINT SPRAIN
     Dosage: 1 PATCH, SINGLE
     Route: 061
     Dates: start: 20090831, end: 20090831
  2. TRILEPTAL [Concomitant]
     Indication: CONVULSION
     Dosage: UNK
  3. LAMICTAL [Concomitant]
     Indication: CONVULSION
     Dosage: UNK
  4. LORAZEPAM [Concomitant]
     Dosage: UNK

REACTIONS (1)
  - CONVULSION [None]
